FAERS Safety Report 22078735 (Version 2)
Quarter: 2023Q1

REPORT INFORMATION
  Report Type: Report from Study
  Country: US (occurrence: US)
  Receive Date: 20230309
  Receipt Date: 20230310
  Transmission Date: 20230417
  Serious: Yes (Death, Other)
  Sender: FDA-Public Use
  Company Number: US-MYLANLABS-2023M1024244

PATIENT
  Age: 57 Year
  Sex: Male

DRUGS (7)
  1. LEVETIRACETAM [Suspect]
     Active Substance: LEVETIRACETAM
     Dosage: UNK
     Route: 065
  2. MIDAZOLAM [Suspect]
     Active Substance: MIDAZOLAM
     Dosage: UNK
     Route: 065
  3. PROPOFOL [Suspect]
     Active Substance: PROPOFOL
     Dosage: UNK
     Route: 065
  4. KETAMINE HYDROCHLORIDE [Suspect]
     Active Substance: KETAMINE HYDROCHLORIDE
     Dosage: UNK
     Route: 065
  5. PHENYTOIN [Suspect]
     Active Substance: PHENYTOIN
     Dosage: UNK
     Route: 065
  6. VALPROIC ACID [Suspect]
     Active Substance: VALPROIC ACID
     Dosage: UNK
     Route: 065
  7. LACOSAMIDE [Suspect]
     Active Substance: LACOSAMIDE
     Dosage: UNK
     Route: 065

REACTIONS (2)
  - Ventricular arrhythmia [Fatal]
  - Electrocardiogram QRS complex prolonged [Fatal]
